FAERS Safety Report 8976779 (Version 1)
Quarter: 2012Q4

REPORT INFORMATION
  Report Type: 
  Country: US (occurrence: US)
  Receive Date: 20121219
  Receipt Date: 20121219
  Transmission Date: 20130627
  Serious: No
  Sender: FDA-Public Use
  Company Number: US-AMGEN-USASP2012059488

PATIENT
  Sex: Female

DRUGS (4)
  1. PROLIA [Suspect]
     Indication: OSTEOPOROSIS POSTMENOPAUSAL
     Dosage: 60 mg, q6mo
     Dates: start: 201205
  2. THYROID PREPARATIONS [Concomitant]
     Indication: HYPOTHYROIDISM
     Dosage: UNK
  3. ANTIHYPERTENSIVES [Concomitant]
     Indication: HYPERTENSION
     Dosage: UNK
  4. ANXIOLYTICS [Concomitant]
     Indication: ANXIETY
     Dosage: UNK

REACTIONS (4)
  - Pain in jaw [Recovering/Resolving]
  - Vertigo [Recovered/Resolved]
  - Back pain [Not Recovered/Not Resolved]
  - Pain in extremity [Not Recovered/Not Resolved]
